FAERS Safety Report 7445099-3 (Version None)
Quarter: 2011Q2

REPORT INFORMATION
  Report Type: 
  Country: None (occurrence: None)
  Receive Date: 20110429
  Receipt Date: 20091012
  Transmission Date: 20111010
  Serious: Yes (Other)
  Sender: FDA-Public Use
  Company Number: US-BAYER-200937840NA

PATIENT
  Age: 63 Year
  Sex: Female
  Weight: 78.912 kg

DRUGS (21)
  1. TRASYLOL [Suspect]
     Indication: AORTIC VALVE REPAIR
     Dosage: 200 ML, ONCE
     Route: 042
     Dates: start: 20040301, end: 20040301
  2. HEPARIN [Concomitant]
     Dosage: 39200 U, UNK
     Route: 042
     Dates: start: 20040301
  3. ATIVAN [Concomitant]
     Dosage: 0.5 MG, HS
  4. LANOXIN [Concomitant]
     Dosage: 0.125 MG, QD
     Route: 048
  5. LEXAPRO [Concomitant]
     Dosage: 10 MG, QD
     Route: 048
  6. CIPROFLOXACIN [Concomitant]
     Dosage: UNK
     Dates: start: 20040227
  7. CLONIDINE [Concomitant]
     Dosage: 0.2 MG, QD
     Route: 048
  8. MANNITOL [Concomitant]
     Dosage: 250 ML, UNK
     Route: 042
  9. FORANE [Concomitant]
     Route: 042
  10. TRASYLOL [Suspect]
     Indication: MITRAL VALVE REPLACEMENT
     Dosage: 1 ML, ONCE
     Route: 042
     Dates: start: 20040301, end: 20040301
  11. TRASYLOL [Suspect]
     Dosage: 50 ML, Q1HR
     Dates: start: 20040301, end: 20040301
  12. COUMADIN [Concomitant]
     Dosage: 4 MG, UNK
     Route: 048
     Dates: start: 20040226
  13. LASIX [Concomitant]
  14. DIOVAN [Concomitant]
     Dosage: UNK UNK, QD
     Route: 048
  15. PLASMA [Concomitant]
     Dosage: 2 U, UNK
     Dates: start: 20040301
  16. ATIVAN [Concomitant]
     Dosage: 1 MG, QD
     Route: 048
  17. INSULIN [INSULIN] [Concomitant]
     Route: 042
  18. ANCEF [Concomitant]
     Dosage: 1 G, UNK
     Route: 042
     Dates: start: 20040301
  19. TOPROL-XL [Concomitant]
     Dosage: 40 MG, QD
     Route: 048
  20. ALBUMEN [Concomitant]
     Dosage: 10 ML, UNK
     Route: 042
  21. PROTAMINE SULFATE [Concomitant]
     Dosage: UNK
     Route: 042
     Dates: start: 20040301

REACTIONS (13)
  - RENAL IMPAIRMENT [None]
  - ANXIETY [None]
  - RENAL FAILURE [None]
  - STRESS [None]
  - PAIN [None]
  - CEREBROVASCULAR ACCIDENT [None]
  - FEAR [None]
  - MULTI-ORGAN FAILURE [None]
  - INJURY [None]
  - EMOTIONAL DISTRESS [None]
  - RENAL INJURY [None]
  - UNEVALUABLE EVENT [None]
  - ANHEDONIA [None]
